FAERS Safety Report 5522045-0 (Version None)
Quarter: 2007Q4

REPORT INFORMATION
  Report Type: 
  Country: None (occurrence: None)
  Receive Date: 20071115
  Receipt Date: 20071108
  Transmission Date: 20080405
  Serious: Yes (Death, Hospitalization, Other)
  Sender: FDA-Public Use
  Company Number: 163-21880-07110564

PATIENT
  Age: 70 Year
  Sex: Female

DRUGS (3)
  1. REVLIMID [Suspect]
     Indication: ACUTE MYELOID LEUKAEMIA
     Dosage: 25 MG, OD, ORAL; 25 MG, 1 IN 1 D, ORAL; 10 MG, 1 IN 1 D, ORAL
     Route: 048
     Dates: start: 20070907, end: 20071004
  2. REVLIMID [Suspect]
     Indication: ACUTE MYELOID LEUKAEMIA
     Dosage: 25 MG, OD, ORAL; 25 MG, 1 IN 1 D, ORAL; 10 MG, 1 IN 1 D, ORAL
     Route: 048
     Dates: start: 20071016, end: 20071107
  3. REVLIMID [Suspect]
     Indication: ACUTE MYELOID LEUKAEMIA
     Dosage: 25 MG, OD, ORAL; 25 MG, 1 IN 1 D, ORAL; 10 MG, 1 IN 1 D, ORAL
     Route: 048
     Dates: start: 20070725

REACTIONS (3)
  - LUNG DISORDER [None]
  - MELANOMA RECURRENT [None]
  - PULMONARY EMBOLISM [None]
